FAERS Safety Report 5629744-0 (Version None)
Quarter: 2008Q1

REPORT INFORMATION
  Report Type: 
  Country: None (occurrence: None)
  Receive Date: 20080218
  Receipt Date: 20080211
  Transmission Date: 20080703
  Serious: Yes (Other)
  Sender: FDA-Public Use
  Company Number: CH-ASTRAZENECA-2008AC00458

PATIENT
  Age: 66 Year
  Sex: Male
  Weight: 57 kg

DRUGS (3)
  1. OMEPRAZOLE [Suspect]
  2. VORICONAZOLE [Interacting]
     Indication: BRONCHOPULMONARY ASPERGILLOSIS
     Dosage: (2 X 200 MG)
     Route: 042
  3. VORICONAZOLE [Interacting]
     Dosage: (2 X 150 MG)
     Route: 042

REACTIONS (3)
  - ACCIDENTAL OVERDOSE [None]
  - DRUG INTERACTION [None]
  - HALLUCINATIONS, MIXED [None]
